FAERS Safety Report 13219562 (Version 1)
Quarter: 2017Q1

REPORT INFORMATION
  Report Type: Spontaneous
  Country: US (occurrence: US)
  Receive Date: 20170210
  Receipt Date: 20170210
  Transmission Date: 20170428
  Serious: No
  Sender: FDA-Public Use
  Company Number: US-ASTRAZENECA-2017SE12435

PATIENT
  Age: 1054 Month
  Sex: Male
  Weight: 74.8 kg

DRUGS (3)
  1. CASODEX [Suspect]
     Active Substance: BICALUTAMIDE
     Indication: PROSTATE CANCER
     Route: 048
     Dates: start: 201602, end: 201606
  2. NORVASC [Concomitant]
     Active Substance: AMLODIPINE BESYLATE
     Indication: BLOOD PRESSURE ABNORMAL
     Route: 048
  3. FINASTERIDE. [Concomitant]
     Active Substance: FINASTERIDE
     Indication: PROSTATE CANCER
     Dates: start: 2005

REACTIONS (8)
  - Loss of libido [Recovering/Resolving]
  - Erectile dysfunction [Recovering/Resolving]
  - Gynaecomastia [Recovering/Resolving]
  - Visual acuity reduced [Unknown]
  - Nipple pain [Recovering/Resolving]
  - Neovascular age-related macular degeneration [Unknown]
  - Asthenia [Recovering/Resolving]
  - Coronary artery insufficiency [Recovered/Resolved]

NARRATIVE: CASE EVENT DATE: 201602
